FAERS Safety Report 25387253 (Version 4)
Quarter: 2025Q3

REPORT INFORMATION
  Report Type: Report from Study
  Country: US (occurrence: US)
  Receive Date: 20250602
  Receipt Date: 20250716
  Transmission Date: 20251021
  Serious: Yes (Other)
  Sender: MALLINCKRODT
  Company Number: US-MALLINCKRODT-MNK202503071

PATIENT
  Age: 63 Year
  Sex: Female

DRUGS (6)
  1. CORTICOTROPIN [Suspect]
     Active Substance: CORTICOTROPIN
     Indication: Multiple sclerosis
     Route: 058
     Dates: start: 20250511, end: 20250516
  2. CORTICOTROPIN [Suspect]
     Active Substance: CORTICOTROPIN
     Dates: start: 20250606
  3. TYSABRI [Concomitant]
     Active Substance: NATALIZUMAB
  4. METHOTREXATE [Concomitant]
     Active Substance: METHOTREXATE
  5. HYDROXYCHLOROQUINE DIPHOSPHATE [Concomitant]
     Active Substance: HYDROXYCHLOROQUINE DIPHOSPHATE
  6. ACTEMRA [Concomitant]
     Active Substance: TOCILIZUMAB

REACTIONS (10)
  - Multiple sclerosis relapse [Unknown]
  - Carpal tunnel syndrome [Unknown]
  - Pancreatitis [Unknown]
  - Dizziness [Unknown]
  - Epigastric discomfort [Unknown]
  - Swelling [Recovering/Resolving]
  - Headache [Recovering/Resolving]
  - Swelling face [Recovering/Resolving]
  - Hypertension [Unknown]
  - Generalised oedema [Unknown]

NARRATIVE: CASE EVENT DATE: 20250101
